FAERS Safety Report 24061107 (Version 2)
Quarter: 2024Q3

REPORT INFORMATION
  Report Type: Spontaneous
  Country: US (occurrence: US)
  Receive Date: 20240708
  Receipt Date: 20240801
  Transmission Date: 20241017
  Serious: No
  Sender: PFIZER
  Company Number: US-SEATTLE GENETICS-2022SGN12009

PATIENT
  Age: 69 Year
  Sex: Female

DRUGS (1)
  1. TUKYSA [Suspect]
     Active Substance: TUCATINIB
     Dosage: 50 MG TAKE 5 TABLETS TWICE A DAY

REACTIONS (2)
  - Fatigue [Unknown]
  - Pain [Unknown]
